FAERS Safety Report 10537921 (Version 3)
Quarter: 2015Q1

REPORT INFORMATION
  Report Type: Report from Study
  Country: GR (occurrence: GR)
  Receive Date: 20141023
  Receipt Date: 20150213
  Transmission Date: 20150720
  Serious: Yes (Hospitalization)
  Sender: FDA-Public Use
  Company Number: GR-SA-2014SA140063

PATIENT
  Age: 71 Year
  Sex: Male
  Weight: 93 kg

DRUGS (17)
  1. AFLIBERCEPT [Suspect]
     Active Substance: AFLIBERCEPT
     Indication: COLORECTAL CANCER METASTATIC
     Dosage: Q 15 DAYS
     Route: 041
     Dates: start: 20140924, end: 20140924
  2. 5-FU [Suspect]
     Active Substance: FLUOROURACIL
     Indication: COLORECTAL CANCER METASTATIC
     Dosage: CONTINUED INTRAVENOUS ADMINISTRATION FOR 48 H, Q 15DAYS
     Route: 041
     Dates: start: 20140730
  3. ZANTAC [Concomitant]
     Active Substance: RANITIDINE HYDROCHLORIDE
     Indication: PREMEDICATION
     Route: 042
     Dates: start: 20140730
  4. IRINOTECAN [Suspect]
     Active Substance: IRINOTECAN
     Indication: COLORECTAL CANCER METASTATIC
     Dosage: SINGLE DOSE: 360 MG CYCLE 1, 288 MG CYCLE 2,3,4,5
     Route: 041
     Dates: start: 20140924, end: 20140924
  5. 5-FU [Suspect]
     Active Substance: FLUOROURACIL
     Indication: COLORECTAL CANCER METASTATIC
     Dosage: Q 15 DAYS
     Route: 040
     Dates: start: 20140730, end: 20140730
  6. 5-FU [Suspect]
     Active Substance: FLUOROURACIL
     Indication: COLORECTAL CANCER METASTATIC
     Dosage: CONTINUED INTRAVENOUS ADMINISTRATION FOR 48 H, Q 15DAYS
     Route: 041
     Dates: start: 20140924, end: 20140925
  7. 5-FU [Suspect]
     Active Substance: FLUOROURACIL
     Indication: COLORECTAL CANCER METASTATIC
     Dosage: CONTINUED INTRAVENOUS ADMINISTRATION FOR 48 H, Q 15DAYS
     Route: 040
     Dates: start: 20140924, end: 20140924
  8. ZOFRAN [Concomitant]
     Active Substance: ONDANSETRON HYDROCHLORIDE
     Indication: PREMEDICATION
     Dosage: EVERY THERAPY
     Route: 042
     Dates: start: 20140730
  9. EUTHYROX [Concomitant]
     Active Substance: LEVOTHYROXINE SODIUM
     Indication: HYPOTHYROIDISM
     Dosage: 1 X 1
     Route: 048
  10. NORVASC [Concomitant]
     Active Substance: AMLODIPINE BESYLATE
     Indication: HYPERTENSION
     Dates: start: 20140924, end: 20140924
  11. FENISTIL [Concomitant]
     Active Substance: DIMETHINDENE
     Indication: PREMEDICATION
     Dosage: EVERY THERAPY
     Route: 042
     Dates: start: 20140730
  12. AFLIBERCEPT [Suspect]
     Active Substance: AFLIBERCEPT
     Indication: COLORECTAL CANCER METASTATIC
     Dosage: Q 15 DAYS
     Route: 041
     Dates: start: 20140730, end: 20140730
  13. DEXAMETHASONE. [Concomitant]
     Active Substance: DEXAMETHASONE
     Indication: PREMEDICATION
     Dosage: EVERY THERAPY
     Route: 042
     Dates: start: 20140730
  14. LEUCOVORIN [Suspect]
     Active Substance: LEUCOVORIN
     Indication: COLORECTAL CANCER METASTATIC
     Dosage: Q 15 DAYS
     Route: 041
     Dates: start: 20140730, end: 20140730
  15. XATRAL [Concomitant]
     Active Substance: ALFUZOSIN
     Indication: HYPOTHYROIDISM
     Dosage: 1 X1
     Route: 048
  16. IRINOTECAN [Suspect]
     Active Substance: IRINOTECAN
     Indication: COLORECTAL CANCER METASTATIC
     Dosage: SINGLE DOSE: 360 MG CYCLE 1, 288 MG CYCLE 2,3,4,5
     Route: 041
     Dates: start: 20140730, end: 20140730
  17. LEUCOVORIN [Suspect]
     Active Substance: LEUCOVORIN
     Indication: COLORECTAL CANCER METASTATIC
     Dosage: Q 15 DAYS
     Route: 042
     Dates: start: 20140924, end: 20140924

REACTIONS (1)
  - Cardiac failure [Recovered/Resolved]

NARRATIVE: CASE EVENT DATE: 20140927
